FAERS Safety Report 23725841 (Version 1)
Quarter: 2024Q2

REPORT INFORMATION
  Report Type: Other
  Country: CA (occurrence: CA)
  Receive Date: 20240410
  Receipt Date: 20240410
  Transmission Date: 20240716
  Serious: Yes (Hospitalization, Other)
  Sender: FDA-Public Use
  Company Number: CA-APOTEX-2024AP004245

PATIENT
  Age: 77 Year
  Sex: Female

DRUGS (1)
  1. ROSUVASTATIN [Suspect]
     Active Substance: ROSUVASTATIN
     Indication: Hypercholesterolaemia
     Dosage: 10 MILLIGRAM
     Route: 048

REACTIONS (4)
  - Gastrointestinal carcinoma [Unknown]
  - Product dose omission issue [Unknown]
  - Intentional product misuse [Unknown]
  - Diarrhoea [Unknown]
